FAERS Safety Report 19990930 (Version 1)
Quarter: 2021Q4

REPORT INFORMATION
  Report Type: Spontaneous
  Country: US (occurrence: US)
  Receive Date: 20211025
  Receipt Date: 20211025
  Transmission Date: 20220303
  Serious: Yes (Other)
  Sender: FDA-Public Use
  Company Number: None

PATIENT
  Age: 23 Year
  Sex: Female
  Weight: 60.75 kg

DRUGS (2)
  1. ESCITALOPRAM [Suspect]
     Active Substance: ESCITALOPRAM OXALATE
     Indication: Anxiety
     Dosage: ?          QUANTITY:1 TABLET(S);
     Route: 048
     Dates: start: 20211024, end: 20211025
  2. ARIPIPRAZOLE [Suspect]
     Active Substance: ARIPIPRAZOLE
     Indication: Bipolar I disorder
     Dosage: ?          QUANTITY:1 TABLET(S);
     Route: 048
     Dates: start: 20211020, end: 20211025

REACTIONS (2)
  - Therapy change [None]
  - Mental disorder [None]

NARRATIVE: CASE EVENT DATE: 20211009
